FAERS Safety Report 5671417-2 (Version None)
Quarter: 2008Q1

REPORT INFORMATION
  Report Type: 
  Country: None (occurrence: None)
  Receive Date: 20080318
  Receipt Date: 20080309
  Transmission Date: 20080703
  Serious: Yes (Other)
  Sender: FDA-Public Use
  Company Number: EG-PFIZER INC-2008022143

PATIENT
  Age: 12 Year
  Sex: Female

DRUGS (1)
  1. UNASYN [Suspect]
     Indication: ABSCESS
     Route: 042
     Dates: start: 20080209, end: 20080209

REACTIONS (1)
  - SYNCOPE [None]
